FAERS Safety Report 9314036 (Version 1)
Quarter: 2013Q2

REPORT INFORMATION
  Report Type: Spontaneous
  Country: US (occurrence: None)
  Receive Date: 20130524
  Receipt Date: 20130524
  Transmission Date: 20140414
  Serious: Yes (Hospitalization, Other)
  Sender: FDA-Public Use
  Company Number: None

PATIENT
  Age: 62 Year
  Sex: Female

DRUGS (2)
  1. FOSPHENYTOIN [Suspect]
     Indication: CONVULSION
     Route: 042
     Dates: start: 20130412, end: 20130412
  2. PHENYTOIN [Suspect]
     Indication: CONVULSION
     Route: 048
     Dates: start: 20130209, end: 20130416

REACTIONS (3)
  - Pyrexia [None]
  - Eosinophilia [None]
  - Hepatic enzyme increased [None]
